FAERS Safety Report 5657574-2 (Version None)
Quarter: 2008Q1

REPORT INFORMATION
  Report Type: 
  Country: None (occurrence: None)
  Receive Date: 20080310
  Receipt Date: 20080305
  Transmission Date: 20080703
  Serious: No
  Sender: FDA-Public Use
  Company Number: US-BAXTER-2008BH001910

PATIENT
  Age: 65 Year
  Sex: Female
  Weight: 58 kg

DRUGS (9)
  1. HEPARIN SODIUM [Suspect]
     Indication: PROPHYLAXIS
     Route: 033
     Dates: start: 20071101, end: 20080302
  2. COUMADIN [Concomitant]
     Indication: ATRIAL FIBRILLATION
     Dosage: DOSE UNIT:UNKNOWN
     Route: 048
  3. AMIODARONE HCL [Concomitant]
     Indication: LOW CARDIAC OUTPUT SYNDROME
     Dosage: DOSE UNIT:UNKNOWN
     Route: 048
  4. ZOCOR [Concomitant]
     Indication: HYPERCHOLESTEROLAEMIA
     Dosage: DOSE UNIT:UNKNOWN
     Route: 048
  5. ZEMPLAR [Concomitant]
     Indication: RENAL FAILURE CHRONIC
     Dosage: DOSE UNIT:UNKNOWN
     Route: 048
  6. RENAGEL [Concomitant]
     Indication: RENAL FAILURE CHRONIC
     Dosage: DOSE UNIT:UNKNOWN
     Route: 048
  7. OSCAL [Concomitant]
     Indication: MINERAL SUPPLEMENTATION
     Dosage: DOSE UNIT:UNKNOWN
     Route: 048
  8. SENOKOT                                 /UNK/ [Concomitant]
     Indication: CONSTIPATION
     Dosage: DOSE UNIT:UNKNOWN
     Route: 048
  9. DIANEAL [Concomitant]
     Indication: RENAL FAILURE CHRONIC
     Dosage: DOSE UNIT:UNKNOWN
     Route: 033

REACTIONS (7)
  - BLOOD PRESSURE DECREASED [None]
  - DECREASED APPETITE [None]
  - DIZZINESS [None]
  - DYSPEPSIA [None]
  - MALAISE [None]
  - NAUSEA [None]
  - STOMACH DISCOMFORT [None]
